FAERS Safety Report 10920914 (Version 2)
Quarter: 2015Q1

REPORT INFORMATION
  Report Type: Spontaneous
  Country: US (occurrence: US)
  Receive Date: 20150317
  Receipt Date: 20150326
  Transmission Date: 20150721
  Serious: Yes (Other)
  Sender: FDA-Public Use
  Company Number: US-PERRIGO-15US002722

PATIENT
  Age: 63 Year
  Sex: Male
  Weight: 79.37 kg

DRUGS (3)
  1. TUSSIN [Suspect]
     Active Substance: GUAIFENESIN
     Indication: RESPIRATORY TRACT CONGESTION
  2. ALLOPURINOL. [Concomitant]
     Active Substance: ALLOPURINOL
     Indication: GOUT
     Dosage: UNK
     Route: 065
     Dates: start: 2013
  3. TUSSIN [Suspect]
     Active Substance: GUAIFENESIN
     Indication: COUGH
     Dosage: 10 ML, Q4H
     Route: 048
     Dates: start: 20150304, end: 20150306

REACTIONS (4)
  - Seizure [Recovered/Resolved]
  - Pallor [Recovered/Resolved]
  - Panic reaction [Recovered/Resolved]
  - Respiration abnormal [Recovered/Resolved]

NARRATIVE: CASE EVENT DATE: 20150306
